FAERS Safety Report 5259193-9 (Version None)
Quarter: 2007Q1

REPORT INFORMATION
  Report Type: 
  Country: None (occurrence: None)
  Receive Date: 20070308
  Receipt Date: 20070223
  Transmission Date: 20070707
  Serious: Yes (Disabling, Other)
  Sender: FDA-Public Use
  Company Number: AU-PFIZER INC-2007009207

PATIENT
  Sex: Male

DRUGS (6)
  1. LYRICA [Suspect]
     Indication: NEURALGIA
  2. LYRICA [Suspect]
     Indication: BACK PAIN
  3. NEURONTIN [Suspect]
  4. ENDEP [Suspect]
  5. ZOLOFT [Concomitant]
     Indication: DEPRESSION
     Route: 048
  6. FAMOTIDINE [Concomitant]
     Route: 048

REACTIONS (9)
  - CONFUSIONAL STATE [None]
  - DIZZINESS [None]
  - FALL [None]
  - HYPERSOMNIA [None]
  - MUSCULAR WEAKNESS [None]
  - SYNCOPE [None]
  - TREMOR [None]
  - VISION BLURRED [None]
  - VISUAL DISTURBANCE [None]
